FAERS Safety Report 12300792 (Version 2)
Quarter: 2016Q2

REPORT INFORMATION
  Report Type: Spontaneous
  Country: US (occurrence: US)
  Receive Date: 20160425
  Receipt Date: 20160503
  Transmission Date: 20160815
  Serious: Yes (Hospitalization, Other)
  Sender: FDA-Public Use
  Company Number: US-ALKERMES INC.-ALK-2016-000995

PATIENT
  Age: 49 Year
  Sex: Male
  Weight: 81.63 kg

DRUGS (1)
  1. VIVITROL [Suspect]
     Active Substance: NALTREXONE
     Indication: ALCOHOLISM
     Dosage: 380 MG, QMO
     Route: 030
     Dates: start: 20160225

REACTIONS (15)
  - Dizziness [Unknown]
  - Pyrexia [Unknown]
  - Pleural effusion [Unknown]
  - Drug effect decreased [Unknown]
  - Neutrophil count increased [Unknown]
  - White blood cell count increased [Unknown]
  - Abdominal hernia [Unknown]
  - Flank pain [Unknown]
  - Nephrolithiasis [Unknown]
  - Pneumonia [Unknown]
  - Sepsis [Unknown]
  - Chills [Unknown]
  - Lipase increased [Unknown]
  - Lung abscess [Unknown]
  - Drug screen positive [Unknown]

NARRATIVE: CASE EVENT DATE: 20160327
